FAERS Safety Report 10457147 (Version 4)
Quarter: 2014Q4

REPORT INFORMATION
  Report Type: Spontaneous
  Country: PE (occurrence: PE)
  Receive Date: 20140916
  Receipt Date: 20141008
  Transmission Date: 20150528
  Serious: Yes (Hospitalization, Other)
  Sender: FDA-Public Use
  Company Number: PE-TEVA-508960ISR

PATIENT
  Age: 78 Year
  Sex: Female
  Weight: 45 kg

DRUGS (5)
  1. PHENYTOIN 100 MG TABLETS [Concomitant]
     Indication: SEIZURE
  2. TELMISARTAN 80 MG TABLETS [Concomitant]
     Indication: HYPERTENSION
     Dosage: 1 TABLET AT 8 IN THE MORNING
  3. AMLODIPINE TABLETS 10 MG [Concomitant]
     Indication: HYPERTENSION
     Dosage: 2 TABLET DAILY; 1 TABLET AT 8 AM AND 1 TABLET AT 8 NIGHT
  4. SULCONAR [Concomitant]
     Route: 048
  5. AZILECT [Suspect]
     Active Substance: RASAGILINE MESYLATE
     Indication: PARKINSON^S DISEASE
     Dosage: 1 MILLIGRAM DAILY;
     Route: 048
     Dates: start: 20140716, end: 20140904

REACTIONS (3)
  - Hypertension [Recovered/Resolved]
  - Partial seizures [Recovered/Resolved]
  - Influenza [Recovered/Resolved]

NARRATIVE: CASE EVENT DATE: 201408
